FAERS Safety Report 18509629 (Version 1)
Quarter: 2020Q4

REPORT INFORMATION
  Report Type: Spontaneous
  Country: US (occurrence: US)
  Receive Date: 20201116
  Receipt Date: 20201116
  Transmission Date: 20210114
  Serious: No
  Sender: FDA-Public Use
  Company Number: None

PATIENT
  Age: 88 Year
  Sex: Male

DRUGS (3)
  1. ESBRIET [Suspect]
     Active Substance: PIRFENIDONE
     Indication: IDIOPATHIC PULMONARY FIBROSIS
     Route: 048
     Dates: start: 20171219
  2. ELIQUIS [Concomitant]
     Active Substance: APIXABAN
  3. METOPROL TAR [Concomitant]

REACTIONS (3)
  - Therapy interrupted [None]
  - Fall [None]
  - Blood pressure decreased [None]

NARRATIVE: CASE EVENT DATE: 20201107
